FAERS Safety Report 16760857 (Version 3)
Quarter: 2019Q4

REPORT INFORMATION
  Report Type: Spontaneous
  Country: JP (occurrence: JP)
  Receive Date: 20190830
  Receipt Date: 20191227
  Transmission Date: 20200122
  Serious: Yes (Hospitalization, Other)
  Sender: FDA-Public Use
  Company Number: JP-AMGEN-JPNSP2019138717

PATIENT
  Age: 69 Year
  Sex: Male
  Weight: 55 kg

DRUGS (6)
  1. ALFAROL [Concomitant]
     Active Substance: ALFACALCIDOL
     Dosage: 1 MICROGRAM, QD
     Dates: start: 20190606
  2. TEPRENONE [Concomitant]
     Active Substance: TEPRENONE
     Dosage: 150 MILLIGRAM, QD
     Dates: start: 20181121, end: 20181218
  3. FEBURIC [Concomitant]
     Active Substance: FEBUXOSTAT
     Dosage: 10 MILLIGRAM, QD
     Dates: start: 20181121
  4. CALONAL [Concomitant]
     Active Substance: ACETAMINOPHEN
     Indication: MYALGIA
     Dosage: 400 MILLIGRAM, QD
     Dates: start: 20190628
  5. HALCION [Concomitant]
     Active Substance: TRIAZOLAM
     Dosage: 0.5 MICROGRAM, QD
     Dates: start: 2019
  6. EVENITY [Suspect]
     Active Substance: ROMOSOZUMAB-AQQG
     Indication: OSTEOPOROSIS
     Dosage: 210 MILLIGRAM
     Route: 058
     Dates: start: 20190425, end: 20190804

REACTIONS (7)
  - Chest pain [Recovering/Resolving]
  - Hepatic function abnormal [Recovering/Resolving]
  - Arthralgia [Recovering/Resolving]
  - Myalgia [Recovering/Resolving]
  - Spinal compression fracture [Unknown]
  - Chest discomfort [Recovering/Resolving]
  - Macular degeneration [Unknown]

NARRATIVE: CASE EVENT DATE: 2019
